FAERS Safety Report 7285185-4 (Version None)
Quarter: 2011Q1

REPORT INFORMATION
  Report Type: 
  Country: None (occurrence: None)
  Receive Date: 20110210
  Receipt Date: 20110131
  Transmission Date: 20110831
  Serious: Yes (Death, Hospitalization)
  Sender: FDA-Public Use
  Company Number: PT-MILLENNIUM PHARMACEUTICALS, INC.-2011-00441

PATIENT

DRUGS (3)
  1. DEXAMETHASONE [Concomitant]
     Dosage: 20 MG, UNK
     Dates: start: 20101108
  2. PAMIDRONATE DISODIUM [Concomitant]
     Dosage: UNK
     Dates: start: 20101104
  3. VELCADE [Suspect]
     Indication: MULTIPLE MYELOMA
     Dosage: 1.3 MG/M2, UNK
     Route: 042
     Dates: start: 20101108, end: 20101108

REACTIONS (3)
  - PULMONARY FIBROSIS [None]
  - RESPIRATORY FAILURE [None]
  - INTERSTITIAL LUNG DISEASE [None]
